FAERS Safety Report 5136885-3 (Version None)
Quarter: 2006Q4

REPORT INFORMATION
  Report Type: 
  Country: None (occurrence: None)
  Receive Date: 20061023
  Receipt Date: 20061011
  Transmission Date: 20070319
  Serious: Yes (Hospitalization)
  Sender: FDA-Public Use
  Company Number: 2006123805

PATIENT
  Age: 58 Year
  Sex: Male

DRUGS (6)
  1. SPIRONOLACTONE [Suspect]
     Indication: HYPERTENSION
     Dosage: (25 MG, DAILY), ORAL
     Route: 048
     Dates: end: 20060805
  2. RAMIPRIL [Suspect]
     Indication: HYPERTENSION
     Dosage: (5 MG, DAILY), ORAL
     Route: 048
  3. METFORMIN HCL [Concomitant]
  4. GLYBURIDE [Concomitant]
  5. ATORVASTATIN CALCIUM [Concomitant]
  6. ASPIRIN [Concomitant]

REACTIONS (3)
  - DRUG INTERACTION [None]
  - HYPERKALAEMIA [None]
  - RENAL FAILURE ACUTE [None]
